FAERS Safety Report 6450077-7 (Version None)
Quarter: 2009Q4

REPORT INFORMATION
  Report Type: 
  Country: None (occurrence: None)
  Receive Date: 20091120
  Receipt Date: 20091120
  Transmission Date: 20100525
  Serious: Yes (Other)
  Sender: FDA-Public Use
  Company Number: None

PATIENT
  Age: 49 Year
  Sex: Female
  Weight: 77.1115 kg

DRUGS (1)
  1. LIOTHYRONINE SODIUM [Suspect]
     Indication: THYROID DISORDER
     Dosage: 5 MCG 3 DAILY PO
     Route: 048
     Dates: start: 20090920, end: 20091117

REACTIONS (8)
  - ARRHYTHMIA [None]
  - BLOOD PRESSURE INCREASED [None]
  - CHEST PAIN [None]
  - CONFUSIONAL STATE [None]
  - DERMATITIS ALLERGIC [None]
  - HEADACHE [None]
  - NERVOUSNESS [None]
  - PRODUCT SUBSTITUTION ISSUE [None]
